FAERS Safety Report 20231422 (Version 3)
Quarter: 2022Q1

REPORT INFORMATION
  Report Type: Spontaneous
  Country: DE (occurrence: DE)
  Receive Date: 20211227
  Receipt Date: 20220321
  Transmission Date: 20220423
  Serious: Yes (Hospitalization)
  Sender: FDA-Public Use
  Company Number: DE-NOVARTISPH-NVSC2021DE292852

PATIENT
  Age: 55 Year
  Sex: Female
  Weight: 52 kg

DRUGS (8)
  1. CARBOPLATIN [Suspect]
     Active Substance: CARBOPLATIN
     Indication: Breast cancer
     Dosage: UNK, TIW (1, 5 AUC)
     Route: 042
     Dates: start: 20210901, end: 20220101
  2. PACLITAXEL [Suspect]
     Active Substance: PACLITAXEL
     Indication: Breast cancer
     Dosage: UNK, QW (1, 80MG/N2)
     Route: 042
     Dates: start: 20210901, end: 20220101
  3. PERTUZUMAB [Suspect]
     Active Substance: PERTUZUMAB
     Indication: Breast cancer
     Dosage: 420 MG, TIW
     Route: 042
     Dates: start: 20210901, end: 20220101
  4. METAMIZOLE [Concomitant]
     Active Substance: METAMIZOLE
     Indication: Pain
     Dosage: 500 MG, QD
     Route: 048
     Dates: start: 20220102, end: 20220102
  5. ENOXAPARIN [Concomitant]
     Active Substance: ENOXAPARIN
     Indication: Anticoagulant therapy
     Dosage: 40 MG, QD
     Route: 065
     Dates: start: 20220101, end: 20220116
  6. MAGNESIUM [Concomitant]
     Active Substance: MAGNESIUM
     Indication: Supplementation therapy
     Dosage: 40 MG, QD
     Route: 048
     Dates: start: 20220107, end: 20220117
  7. UNACID [Concomitant]
     Indication: Infection
     Dosage: 375 MG, QD
     Route: 048
     Dates: start: 20211229, end: 20220101
  8. LORAZEPAM [Concomitant]
     Active Substance: LORAZEPAM
     Indication: Sedative therapy
     Dosage: 1 MG, QD
     Route: 048
     Dates: start: 20220101, end: 20220116

REACTIONS (5)
  - General physical health deterioration [Recovering/Resolving]
  - Polyneuropathy [Not Recovered/Not Resolved]
  - Anaemia [Unknown]
  - Diarrhoea [Unknown]
  - Peripheral sensory neuropathy [Unknown]

NARRATIVE: CASE EVENT DATE: 20211116
